FAERS Safety Report 9015856 (Version 1)
Quarter: 2013Q1

REPORT INFORMATION
  Report Type: Spontaneous
  Country: FR (occurrence: None)
  Receive Date: 20130103
  Receipt Date: 20130103
  Transmission Date: 20140127
  Serious: Yes (Hospitalization)
  Sender: FDA-Public Use
  Company Number: DSA_60857_2012

PATIENT
  Age: 58 Year
  Sex: Female

DRUGS (3)
  1. FLAGYL [Suspect]
     Indication: GENITAL INFECTION FEMALE
     Dosage: (1 DF)
     Route: 067
     Dates: start: 201210, end: 20121031
  2. LEVOTHROX (UNKNOWN) [Concomitant]
  3. SEROPRAM /00582602/ (UNKNOWN) [Concomitant]

REACTIONS (5)
  - Urticaria [None]
  - Erythema multiforme [None]
  - Rash scarlatiniform [None]
  - Burning sensation [None]
  - Face oedema [None]
